FAERS Safety Report 20803177 (Version 2)
Quarter: 2022Q2

REPORT INFORMATION
  Report Type: Spontaneous
  Country: PL (occurrence: PL)
  Receive Date: 20220509
  Receipt Date: 20220516
  Transmission Date: 20220721
  Serious: No
  Sender: FDA-Public Use
  Company Number: PL-PFIZER INC-202200642966

PATIENT
  Age: 72 Year
  Sex: Female

DRUGS (1)
  1. ACCUPRO [Suspect]
     Active Substance: QUINAPRIL HYDROCHLORIDE
     Dosage: MORNING AND EVENING

REACTIONS (1)
  - Recalled product administered [Unknown]
